FAERS Safety Report 25890750 (Version 1)
Quarter: 2025Q4

REPORT INFORMATION
  Report Type: Spontaneous
  Country: US (occurrence: US)
  Receive Date: 20251007
  Receipt Date: 20251007
  Transmission Date: 20260119
  Serious: Yes (Hospitalization, Other)
  Sender: SANOFI AVENTIS
  Company Number: US-DialogSolutions-SAAVPROD-PI827198-C2

PATIENT
  Age: 42 Year
  Sex: Female

DRUGS (6)
  1. ANTI-THYMOCYTE GLOBULIN (RABBIT) NOS [Suspect]
     Active Substance: LAPINE T-LYMPHOCYTE IMMUNE GLOBULIN
     Indication: End stage renal disease
     Dosage: 1.5 MG/KG
  2. METHYLPREDNISOLONE [Suspect]
     Active Substance: METHYLPREDNISOLONE
     Indication: End stage renal disease
     Dosage: 500 MG
     Route: 042
  3. TACROLIMUS [Suspect]
     Active Substance: TACROLIMUS
  4. MYCOPHENOLATE MOFETIL [Suspect]
     Active Substance: MYCOPHENOLATE MOFETIL
  5. FLUCONAZOLE [Concomitant]
     Active Substance: FLUCONAZOLE
     Indication: Antibiotic prophylaxis
     Dosage: 200 MG
  6. CEFAZOLIN [Concomitant]
     Active Substance: CEFAZOLIN
     Indication: Antibiotic prophylaxis
     Dosage: 2 G

REACTIONS (11)
  - Thrombotic microangiopathy [Recovering/Resolving]
  - Anaemia [Recovering/Resolving]
  - Thrombocytopenia [Recovering/Resolving]
  - Renal tubular necrosis [Recovering/Resolving]
  - Hyperkalaemia [Recovering/Resolving]
  - Hypervolaemia [Recovering/Resolving]
  - Anuria [Recovering/Resolving]
  - Subcapsular renal haematoma [Recovering/Resolving]
  - Stenotrophomonas infection [Unknown]
  - Systemic candida [Recovering/Resolving]
  - Klebsiella infection [Unknown]
